FAERS Safety Report 17305879 (Version 1)
Quarter: 2020Q1

REPORT INFORMATION
  Report Type: Report from Study
  Country: US (occurrence: US)
  Receive Date: 20200123
  Receipt Date: 20200123
  Transmission Date: 20200409
  Serious: Yes (Hospitalization)
  Sender: FDA-Public Use
  Company Number: US-ROCHE-2528613

PATIENT
  Age: 47 Year
  Sex: Female
  Weight: 73 kg

DRUGS (36)
  1. ATEZOLIZUMAB. [Suspect]
     Active Substance: ATEZOLIZUMAB
     Indication: ALVEOLAR SOFT PART SARCOMA METASTATIC
     Dosage: 1200 MG IV OVER 60 MINUTES ON DAY 1?LAST DOSE ADMINISTERED 12/SEP/2019
     Route: 042
     Dates: start: 20171211, end: 20190912
  2. ACETAMINOPHEN. [Concomitant]
     Active Substance: ACETAMINOPHEN
  3. OLOPATADINE. [Concomitant]
     Active Substance: OLOPATADINE
  4. ALBUTEROL [SALBUTAMOL] [Concomitant]
     Active Substance: ALBUTEROL
  5. AZELASTINE. [Concomitant]
     Active Substance: AZELASTINE HYDROCHLORIDE
  6. BETAMETHASONE. [Concomitant]
     Active Substance: BETAMETHASONE
  7. CYCLOBENZAPRINE. [Concomitant]
     Active Substance: CYCLOBENZAPRINE
  8. HEPARIN [Concomitant]
     Active Substance: HEPARIN SODIUM
  9. MOMETASONE [Concomitant]
     Active Substance: MOMETASONE
  10. PREGABALIN. [Concomitant]
     Active Substance: PREGABALIN
  11. FEXOFENADINE [Concomitant]
     Active Substance: FEXOFENADINE HYDROCHLORIDE
  12. ESZOPICLONE. [Concomitant]
     Active Substance: ESZOPICLONE
  13. SUNITINIB [Concomitant]
     Active Substance: SUNITINIB
  14. DULOXETINE. [Concomitant]
     Active Substance: DULOXETINE
  15. MONTELUKAST [Concomitant]
     Active Substance: MONTELUKAST SODIUM
  16. METOPROLOL. [Concomitant]
     Active Substance: METOPROLOL
  17. OXYCODONE [Concomitant]
     Active Substance: OXYCODONE
  18. HYDROCORTISONE. [Concomitant]
     Active Substance: HYDROCORTISONE
  19. ATENOLOL. [Concomitant]
     Active Substance: ATENOLOL
  20. ALPRAZOLAM. [Concomitant]
     Active Substance: ALPRAZOLAM
  21. DOXEPIN [Concomitant]
     Active Substance: DOXEPIN
  22. FORMOTEROL [Concomitant]
     Active Substance: FORMOTEROL
  23. LORAZEPAM. [Concomitant]
     Active Substance: LORAZEPAM
  24. PILOCARPINE. [Concomitant]
     Active Substance: PILOCARPINE
  25. RANITIDINE. [Concomitant]
     Active Substance: RANITIDINE
  26. GEMFIBROZIL. [Concomitant]
     Active Substance: GEMFIBROZIL
  27. OXYBUTYNIN. [Concomitant]
     Active Substance: OXYBUTYNIN CHLORIDE
  28. PROPOFOL. [Concomitant]
     Active Substance: PROPOFOL
  29. SENNOSIDE [SENNOSIDE A+B] [Concomitant]
     Active Substance: SENNOSIDES A AND B
  30. TRAZODONE [Concomitant]
     Active Substance: TRAZODONE HYDROCHLORIDE
  31. TORSEMIDE. [Concomitant]
     Active Substance: TORSEMIDE
  32. LUBIPROSTONE [Concomitant]
     Active Substance: LUBIPROSTONE
  33. CHOLECALCIFEROL [Concomitant]
     Active Substance: CHOLECALCIFEROL
  34. FLUTICASONE. [Concomitant]
     Active Substance: FLUTICASONE
  35. IPRATROPIUM [Concomitant]
     Active Substance: IPRATROPIUM
  36. LIDOCAINE. [Concomitant]
     Active Substance: LIDOCAINE

REACTIONS (1)
  - Cerebrovascular accident [Recovered/Resolved]

NARRATIVE: CASE EVENT DATE: 20190919
